FAERS Safety Report 8930712 (Version 7)
Quarter: 2013Q1

REPORT INFORMATION
  Report Type: Report from Study
  Country: US (occurrence: US)
  Receive Date: 20121128
  Receipt Date: 20130220
  Transmission Date: 20140127
  Serious: No
  Sender: FDA-Public Use
  Company Number: US-VERTEX PHARMACEUTICAL INC.-2012-025033

PATIENT
  Age: 46 Year
  Sex: Male
  Weight: 68 kg

DRUGS (9)
  1. VX-950 (TELAPREVIR) [Suspect]
     Indication: HEPATITIS C
     Dosage: 750 MG, TID
     Route: 048
     Dates: start: 20121109
  2. RIBAVIRIN [Suspect]
     Indication: HEPATITIS C
     Dosage: 600MG IN AM/ 400 MG IN PM
     Route: 048
     Dates: start: 20121109
  3. PEGASYS [Suspect]
     Indication: HEPATITIS C
     Dosage: 180 ?G, QW
     Route: 058
     Dates: start: 20121109
  4. GABAPENTIN [Concomitant]
     Indication: PAIN MANAGEMENT
  5. LEXAPRO [Concomitant]
     Indication: DEPRESSION
  6. OXYCODONE [Concomitant]
     Indication: BACK PAIN
  7. NOVOLOG [Concomitant]
     Indication: DIABETES MELLITUS
     Dosage: SLIDING SCALE INJECTION BEFORE MEALS
     Route: 058
  8. LANTUS [Concomitant]
     Indication: DIABETES MELLITUS
     Dosage: 16UNITS IN AM, 12 UNITS IN PM BID
     Route: 058
     Dates: end: 20121206
  9. LANTUS [Concomitant]
     Dosage: 20 UNITS IN AM, 12 UNITS IN PM
     Route: 058
     Dates: start: 20121207

REACTIONS (5)
  - Inappropriate schedule of drug administration [Recovered/Resolved]
  - Blood glucose increased [Not Recovered/Not Resolved]
  - Insomnia [Not Recovered/Not Resolved]
  - Rash papular [Not Recovered/Not Resolved]
  - Pruritus [Not Recovered/Not Resolved]
